FAERS Safety Report 14564604 (Version 1)
Quarter: 2018Q1

REPORT INFORMATION
  Report Type: Spontaneous
  Country: US (occurrence: US)
  Receive Date: 20180222
  Receipt Date: 20180222
  Transmission Date: 20180509
  Serious: No
  Sender: FDA-Public Use
  Company Number: US-009507513-1802USA011456

PATIENT
  Age: 21 Year
  Sex: Female
  Weight: 74.3 kg

DRUGS (1)
  1. NEXPLANON [Suspect]
     Active Substance: ETONOGESTREL
     Dosage: 1 DF, UNK
     Route: 059
     Dates: start: 20170728

REACTIONS (4)
  - Device kink [Not Recovered/Not Resolved]
  - No adverse event [Unknown]
  - Medical device discomfort [Not Recovered/Not Resolved]
  - Product quality issue [Unknown]
